FAERS Safety Report 11209132 (Version 1)
Quarter: 2015Q2

REPORT INFORMATION
  Report Type: Report from Study
  Country: BR (occurrence: BR)
  Receive Date: 20150622
  Receipt Date: 20150622
  Transmission Date: 20150821
  Serious: Yes (Hospitalization)
  Sender: FDA-Public Use
  Company Number: BR-PFIZER INC-HQWYE407914JUN05

PATIENT
  Age: 57 Year
  Sex: Female
  Weight: 60.4 kg

DRUGS (5)
  1. HESPERIDIN [Concomitant]
     Active Substance: HESPERIDIN
     Dosage: UNK
     Route: 048
     Dates: start: 20050329
  2. BAZEDOXIFENE ACETATE/EQUILIN SULFATE SODIUM/ESTRONE SODIUM SULFATE [Suspect]
     Active Substance: BAZEDOXIFENE ACETATE\ESTROGENS, CONJUGATED
     Indication: MENOPAUSE
     Dosage: 1 DF, 1X/DAY
     Route: 048
     Dates: start: 20031003, end: 20050608
  3. ALUMINIUM HYDROXIDE [Concomitant]
     Active Substance: ALUMINUM HYDROXIDE
     Dosage: UNK
     Route: 048
     Dates: start: 20050329, end: 20050602
  4. DIOSMIN [Concomitant]
     Active Substance: DIOSMIN
     Dosage: UNK
     Route: 048
     Dates: start: 20050329
  5. BAZEDOXIFENE ACETATE/EQUILIN SULFATE SODIUM/ESTRONE SODIUM SULFATE [Suspect]
     Active Substance: BAZEDOXIFENE ACETATE\ESTROGENS, CONJUGATED
     Dosage: 1 DF, 1X/DAY
     Route: 048
     Dates: start: 20050618

REACTIONS (2)
  - Cholelithiasis [None]
  - Cholecystitis [Recovered/Resolved]

NARRATIVE: CASE EVENT DATE: 20050602
